FAERS Safety Report 13070657 (Version 1)
Quarter: 2016Q4

REPORT INFORMATION
  Report Type: Report from Study
  Country: CL (occurrence: CL)
  Receive Date: 20161229
  Receipt Date: 20161229
  Transmission Date: 20170207
  Serious: Yes (Life-Threatening, Hospitalization, Disabling)
  Sender: FDA-Public Use
  Company Number: CL-ROCHE-1584788

PATIENT
  Age: 56 Year
  Sex: Male
  Weight: 88 kg

DRUGS (11)
  1. PREGABALINA [Concomitant]
     Active Substance: PREGABALIN
     Indication: PERIPHERAL SENSORY NEUROPATHY
     Route: 048
     Dates: start: 201303, end: 20150601
  2. CHLORPHENAMINE [Concomitant]
     Active Substance: CHLORPHENIRAMINE MALEATE
     Indication: PREMEDICATION
     Route: 042
     Dates: start: 20150421, end: 20150421
  3. CHLORPHENAMINE [Concomitant]
     Active Substance: CHLORPHENIRAMINE MALEATE
     Route: 042
     Dates: start: 20150511, end: 20150511
  4. DULERA [Concomitant]
     Active Substance: FORMOTEROL FUMARATE DIHYDRATE\MOMETASONE FUROATE
     Indication: CHRONIC OBSTRUCTIVE PULMONARY DISEASE
     Route: 055
     Dates: start: 2009, end: 20150521
  5. NAPROXEN. [Concomitant]
     Active Substance: NAPROXEN
     Indication: PAIN IN EXTREMITY
     Route: 048
     Dates: start: 20150630
  6. ATEZOLIZUMAB [Suspect]
     Active Substance: ATEZOLIZUMAB
     Indication: NON-SMALL CELL LUNG CANCER
     Dosage: MOST RECENT DOSE PRIOR TO SAE ON 11/MAY/2015, 1200MG
     Route: 042
     Dates: start: 20141015
  7. SALBUTAMOL [Concomitant]
     Active Substance: ALBUTEROL
     Indication: CHRONIC OBSTRUCTIVE PULMONARY DISEASE
     Route: 055
     Dates: start: 2009
  8. DEXAMETHASONE. [Concomitant]
     Active Substance: DEXAMETHASONE
     Route: 042
     Dates: start: 20150511, end: 20150511
  9. UMECLIDINIUM BROMIDE/VILANTEROL TRIFENATATE [Concomitant]
     Indication: CHRONIC OBSTRUCTIVE PULMONARY DISEASE
     Route: 055
     Dates: start: 20150521, end: 20150530
  10. GOTELY [Concomitant]
     Indication: PROSTATIC ADENOMA
     Route: 048
     Dates: start: 201003
  11. DEXAMETHASONE. [Concomitant]
     Active Substance: DEXAMETHASONE
     Indication: PREMEDICATION
     Route: 042
     Dates: start: 20150421, end: 20150421

REACTIONS (3)
  - Pneumonia aspiration [Recovered/Resolved]
  - Guillain-Barre syndrome [Recovered/Resolved]
  - Drug hypersensitivity [Recovered/Resolved]

NARRATIVE: CASE EVENT DATE: 20150514
